FAERS Safety Report 10504200 (Version 2)
Quarter: 2015Q2

REPORT INFORMATION
  Report Type: Spontaneous
  Country: US (occurrence: None)
  Receive Date: 20141006
  Receipt Date: 20150506
  Transmission Date: 20150821
  Serious: Yes (Other)
  Sender: FDA-Public Use
  Company Number: ADR-2014-01802

PATIENT
  Age: 47 Year
  Sex: Female

DRUGS (3)
  1. HYDROMORPHONE [Suspect]
     Active Substance: HYDROMORPHONE
     Dosage: 3.497
  2. BACLOFEN. [Suspect]
     Active Substance: BACLOFEN
     Indication: SPINAL PAIN
     Dosage: 104.91 MCG/DAY
  3. BUPIVACAINE [Suspect]
     Active Substance: BUPIVACAINE
     Dosage: DAY

REACTIONS (4)
  - Granuloma [None]
  - Feeling abnormal [None]
  - Inadequate analgesia [None]
  - Catheter site granuloma [None]
